FAERS Safety Report 7330235-X (Version None)
Quarter: 2011Q1

REPORT INFORMATION
  Report Type: 
  Country: None (occurrence: None)
  Receive Date: 20110303
  Receipt Date: 20110223
  Transmission Date: 20110831
  Serious: Yes (Life-Threatening)
  Sender: FDA-Public Use
  Company Number: US-BAYER-2011-013849

PATIENT
  Sex: Female

DRUGS (1)
  1. AVELOX [Suspect]
     Dosage: DAILY DOSE 400 MG
     Route: 048
     Dates: start: 20100817

REACTIONS (3)
  - THROAT TIGHTNESS [None]
  - SWOLLEN TONGUE [None]
  - HYPERSENSITIVITY [None]
